FAERS Safety Report 7783622-X (Version None)
Quarter: 2011Q3

REPORT INFORMATION
  Report Type: 
  Country: None (occurrence: None)
  Receive Date: 20110928
  Receipt Date: 20110411
  Transmission Date: 20111222
  Serious: No
  Sender: FDA-Public Use
  Company Number: US-MYLANLABS-2011S1005606

PATIENT
  Age: 76 Year
  Sex: Male

DRUGS (10)
  1. METOPROLOL TARTRATE [Concomitant]
  2. GEMFIBROZIL [Concomitant]
  3. SIMVASTATIN [Concomitant]
  4. NITRGLYCERIN TRANSDERMAL SYSTEM [Suspect]
     Indication: ANGINA PECTORIS
     Dosage: CHANGED Q.D.
     Route: 062
     Dates: start: 20110228
  5. PLAVIX [Concomitant]
  6. ASPIRIN [Concomitant]
  7. NORVASC [Concomitant]
  8. GLYBURIDE [Concomitant]
  9. HUMULIN /00646001/ [Concomitant]
  10. LANTUS [Concomitant]

REACTIONS (2)
  - APPLICATION SITE SCAR [None]
  - APPLICATION SITE PAIN [None]
